FAERS Safety Report 5753658-9 (Version None)
Quarter: 2008Q2

REPORT INFORMATION
  Report Type: 
  Country: None (occurrence: None)
  Receive Date: 20080530
  Receipt Date: 20080523
  Transmission Date: 20081010
  Serious: Yes (Other)
  Sender: FDA-Public Use
  Company Number: US-JNJFOC-20071103513

PATIENT
  Sex: Female
  Weight: 40.82 kg

DRUGS (3)
  1. ORTHO EVRA [Suspect]
     Indication: MIGRAINE
     Route: 062
  2. ORTHO EVRA [Suspect]
     Indication: MENORRHAGIA
     Dosage: USED X 3-4 DAYS
     Route: 062
  3. LEVOXYL [Concomitant]
     Indication: HYPOTHYROIDISM

REACTIONS (3)
  - INAPPROPRIATE SCHEDULE OF DRUG ADMINISTRATION [None]
  - OFF LABEL USE [None]
  - OSTEONECROSIS [None]
